FAERS Safety Report 9854524 (Version 2)
Quarter: 2014Q2

REPORT INFORMATION
  Report Type: Report from Study
  Country: AR (occurrence: AR)
  Receive Date: 20140130
  Receipt Date: 20140411
  Transmission Date: 20141212
  Serious: Yes (Other)
  Sender: FDA-Public Use
  Company Number: AR-ROCHE-1340800

PATIENT
  Age: 70 Year
  Sex: Female

DRUGS (5)
  1. RANIBIZUMAB [Suspect]
     Indication: PRODUCT USED FOR UNKNOWN INDICATION
     Route: 050
  2. RANIBIZUMAB [Suspect]
     Route: 050
     Dates: start: 20120522
  3. RANIBIZUMAB [Suspect]
     Route: 050
     Dates: start: 20120615
  4. RANIBIZUMAB [Suspect]
     Route: 050
     Dates: start: 20120720
  5. ALENDRONATE [Concomitant]

REACTIONS (3)
  - Dacryoadenitis acquired [Unknown]
  - Dermatitis allergic [Unknown]
  - Pruritus [Unknown]
